FAERS Safety Report 10749081 (Version 1)
Quarter: 2015Q1

REPORT INFORMATION
  Report Type: Spontaneous
  Country: US (occurrence: None)
  Receive Date: 20150128
  Receipt Date: 20150128
  Transmission Date: 20150721
  Serious: No
  Sender: FDA-Public Use
  Company Number: None

PATIENT
  Age: 20 Year
  Sex: Female
  Weight: 80.74 kg

DRUGS (1)
  1. NEXPLANON [Suspect]
     Active Substance: ETONOGESTREL

REACTIONS (17)
  - Headache [None]
  - Menstrual disorder [None]
  - Weight increased [None]
  - Pupillary disorder [None]
  - VIIth nerve paralysis [None]
  - Hormone level abnormal [None]
  - Abdominal pain [None]
  - Visual impairment [None]
  - Breast pain [None]
  - Brief psychotic disorder, with postpartum onset [None]
  - Feeling abnormal [None]
  - Gastrointestinal motility disorder [None]
  - Pain in extremity [None]
  - Mood swings [None]
  - Acne [None]
  - Toxicity to various agents [None]
  - Drug interaction [None]
